FAERS Safety Report 8547723-0 (Version None)
Quarter: 2012Q3

REPORT INFORMATION
  Report Type: 
  Country: None (occurrence: None)
  Receive Date: 20120727
  Receipt Date: 20120501
  Transmission Date: 20120928
  Serious: No
  Sender: FDA-Public Use
  Company Number: US-ASTRAZENECA-2012SE28236

PATIENT
  Age: 52 Year
  Sex: Female
  Weight: 120.2 kg

DRUGS (2)
  1. SEROQUEL [Suspect]
     Route: 048
  2. SEROQUEL [Suspect]
     Indication: BIPOLAR I DISORDER
     Route: 048

REACTIONS (7)
  - INSOMNIA [None]
  - FATIGUE [None]
  - NERVOUSNESS [None]
  - MALAISE [None]
  - INTENTIONAL DRUG MISUSE [None]
  - ABDOMINAL DISCOMFORT [None]
  - DIARRHOEA [None]
